FAERS Safety Report 18626640 (Version 1)
Quarter: 2020Q4

REPORT INFORMATION
  Report Type: Report from Study
  Country: CA (occurrence: CA)
  Receive Date: 20201217
  Receipt Date: 20201217
  Transmission Date: 20210114
  Serious: Yes (Other)
  Sender: FDA-Public Use
  Company Number: CA-JNJFOC-20201224354

PATIENT
  Age: 15 Year
  Sex: Female
  Weight: 42 kg

DRUGS (1)
  1. REMICADE [Suspect]
     Active Substance: INFLIXIMAB
     Indication: CROHN^S DISEASE
     Dosage: ON 11-DEC-2020, THE PATIENT RECEIVED 17TH INFUSION OF 400 MG, PARTIAL HARVEY-BRADSHAW WAS COMPLETED
     Route: 042
     Dates: start: 20190903

REACTIONS (1)
  - Crohn^s disease [Not Recovered/Not Resolved]

NARRATIVE: CASE EVENT DATE: 20201204
